FAERS Safety Report 24997183 (Version 3)
Quarter: 2025Q2

REPORT INFORMATION
  Report Type: Spontaneous
  Country: JP (occurrence: JP)
  Receive Date: 20250221
  Receipt Date: 20250606
  Transmission Date: 20250716
  Serious: Yes (Death, Hospitalization, Other)
  Sender: SUNOVION
  Company Number: JP-SMPA-2025SMP001155

PATIENT

DRUGS (35)
  1. LATUDA [Suspect]
     Active Substance: LURASIDONE HYDROCHLORIDE
     Indication: Schizophrenia
     Dosage: 40 MG, QD
     Route: 048
     Dates: start: 20241219, end: 20241225
  2. LATUDA [Suspect]
     Active Substance: LURASIDONE HYDROCHLORIDE
     Dosage: 60 MG, QD
     Route: 048
     Dates: start: 20241226, end: 20250101
  3. LATUDA [Suspect]
     Active Substance: LURASIDONE HYDROCHLORIDE
     Dosage: 80 MG, QD
     Route: 048
     Dates: start: 20250102, end: 20250103
  4. LATUDA [Suspect]
     Active Substance: LURASIDONE HYDROCHLORIDE
     Dosage: 60 MG, QD
     Route: 048
     Dates: start: 20250104, end: 20250105
  5. LATUDA [Suspect]
     Active Substance: LURASIDONE HYDROCHLORIDE
     Dosage: 40 MG, QD
     Route: 048
     Dates: start: 20250106, end: 20250107
  6. LATUDA [Suspect]
     Active Substance: LURASIDONE HYDROCHLORIDE
     Dosage: 20 MG, QD
     Route: 048
     Dates: start: 20250108, end: 20250109
  7. BLONANSERIN [Suspect]
     Active Substance: BLONANSERIN
     Indication: Schizophrenia
     Dosage: 20 MG, QD
     Route: 062
     Dates: start: 20241010, end: 20241016
  8. BLONANSERIN [Suspect]
     Active Substance: BLONANSERIN
     Dosage: 30 MG, QD
     Route: 062
     Dates: start: 20241017, end: 20241023
  9. BLONANSERIN [Suspect]
     Active Substance: BLONANSERIN
     Dosage: 40 MG, QD
     Route: 062
     Dates: start: 20241024, end: 20241120
  10. BLONANSERIN [Suspect]
     Active Substance: BLONANSERIN
     Dosage: 30 MG, QD
     Route: 062
     Dates: start: 20241121, end: 20250131
  11. BLONANSERIN [Suspect]
     Active Substance: BLONANSERIN
     Dosage: 20 MG, QD
     Route: 062
     Dates: start: 20250201, end: 20250202
  12. DIAZEPAM [Suspect]
     Active Substance: DIAZEPAM
     Indication: Product used for unknown indication
     Dosage: 1 MG, QD
     Route: 048
     Dates: end: 20241204
  13. DIAZEPAM [Suspect]
     Active Substance: DIAZEPAM
     Dosage: 1 MG, BID
     Route: 048
     Dates: start: 20241205, end: 20250131
  14. DIAZEPAM [Suspect]
     Active Substance: DIAZEPAM
     Dosage: 1 MG, QD
     Route: 048
     Dates: start: 20250201, end: 20250203
  15. REXULTI [Suspect]
     Active Substance: BREXPIPRAZOLE
     Indication: Schizophrenia
     Dosage: 1.5 MG, QD
     Route: 048
     Dates: start: 20231218
  16. REXULTI [Suspect]
     Active Substance: BREXPIPRAZOLE
     Dosage: 2 MG, QD
     Route: 048
     Dates: end: 20250203
  17. ZYPREXA [Concomitant]
     Active Substance: OLANZAPINE
     Dosage: 5 MG, QD
     Route: 048
     Dates: end: 20241218
  18. Marzulene es [Concomitant]
     Dosage: 0.5 DF, TID
     Route: 048
     Dates: end: 20250202
  19. Marzulene es [Concomitant]
     Dosage: 0.5 DF, BID
     Route: 048
     Dates: start: 20250203, end: 20250203
  20. MAGNESIUM OXIDE [Concomitant]
     Active Substance: MAGNESIUM OXIDE
     Dosage: 0.5 G, TID
     Route: 048
     Dates: end: 20250202
  21. MAGNESIUM OXIDE [Concomitant]
     Active Substance: MAGNESIUM OXIDE
     Dosage: 0.5 G, BID
     Route: 048
     Dates: start: 20250203, end: 20250203
  22. DAYVIGO [Concomitant]
     Active Substance: LEMBOREXANT
     Dosage: 10 MG, QD
     Route: 048
     Dates: end: 20250203
  23. LUNESTA [Concomitant]
     Active Substance: ESZOPICLONE
     Dosage: 2 MG, HS
     Route: 048
     Dates: end: 20250203
  24. HIBERNA [Concomitant]
     Active Substance: PROMETHAZINE HYDROCHLORIDE
     Dosage: 25 MG, TID
     Route: 048
     Dates: end: 20250202
  25. HIBERNA [Concomitant]
     Active Substance: PROMETHAZINE HYDROCHLORIDE
     Dosage: 25 MG, BID
     Route: 048
     Dates: start: 20250203, end: 20250203
  26. ELOBIXIBAT [Concomitant]
     Active Substance: ELOBIXIBAT
     Dosage: 10 MG, QD
     Route: 048
     Dates: end: 20250203
  27. TRAZODONE HYDROCHLORIDE [Concomitant]
     Active Substance: TRAZODONE HYDROCHLORIDE
     Dosage: 100 MG, HS
     Route: 048
     Dates: end: 20250203
  28. Lecicarbon [Concomitant]
     Route: 054
  29. ACHROMYCIN [Concomitant]
     Active Substance: TETRACYCLINE HYDROCHLORIDE
     Dosage: 30 G, QD
     Route: 003
     Dates: start: 20241210, end: 20241210
  30. Azunol [Concomitant]
     Dosage: 30 G, QD
     Route: 003
     Dates: start: 20241210, end: 20241210
  31. QUETIAPINE [Concomitant]
     Active Substance: QUETIAPINE
     Indication: Restlessness
     Route: 048
     Dates: start: 20241215
  32. URSODIOL [Concomitant]
     Active Substance: URSODIOL
     Indication: Drug-induced liver injury
     Dosage: 200 MG, TID
     Route: 048
     Dates: start: 20250104, end: 20250201
  33. URSODIOL [Concomitant]
     Active Substance: URSODIOL
     Dosage: 200 MG, BID
     Route: 048
     Dates: start: 20250202, end: 20250203
  34. ARICEPT [Concomitant]
     Active Substance: DONEPEZIL HYDROCHLORIDE
     Dosage: 3 MG, QD
     Route: 048
     Dates: start: 20250116, end: 20250122
  35. ARICEPT [Concomitant]
     Active Substance: DONEPEZIL HYDROCHLORIDE
     Dosage: 5 MG, QD
     Route: 048
     Dates: start: 20250123, end: 20250203

REACTIONS (3)
  - Pneumonia aspiration [Fatal]
  - Drug-induced liver injury [Not Recovered/Not Resolved]
  - Parkinsonism [Unknown]

NARRATIVE: CASE EVENT DATE: 20250104
